FAERS Safety Report 4808433-6 (Version None)
Quarter: 2005Q4

REPORT INFORMATION
  Report Type: 
  Country: None (occurrence: None)
  Receive Date: 20051021
  Receipt Date: 20050820
  Transmission Date: 20060501
  Serious: Yes (Other)
  Sender: FDA-Public Use
  Company Number: AU_040808004

PATIENT
  Age: 42 Year
  Sex: Male

DRUGS (5)
  1. ZYPREXA [Suspect]
     Indication: SCHIZOPHRENIA
     Dosage: 5 MG
     Dates: start: 20040730
  2. BENZTROPINE MESYLATE [Concomitant]
  3. FLUPHENAZINE DECANOATE [Concomitant]
  4. CHLORPROMAZINE HCL [Concomitant]
  5. BENZODIAZEPINE [Concomitant]

REACTIONS (2)
  - BONE MARROW DISORDER [None]
  - THROMBOCYTOPENIA [None]
